FAERS Safety Report 4293996-2 (Version None)
Quarter: 2004Q1

REPORT INFORMATION
  Report Type: 
  Country: None (occurrence: None)
  Receive Date: 20040212
  Receipt Date: 20030312
  Transmission Date: 20041129
  Serious: Yes (Hospitalization, Disabling, Congenital Anomaly)
  Sender: FDA-Public Use
  Company Number: WAES 0303USA01211

PATIENT
  Age: 42 Year
  Sex: Female

DRUGS (2)
  1. VIOXX [Suspect]
     Indication: JOINT INJURY
     Route: 048
     Dates: start: 20020913, end: 20020921
  2. VIOXX [Suspect]
     Indication: PAIN
     Route: 048
     Dates: start: 20020913, end: 20020921

REACTIONS (23)
  - ARTERIOVENOUS MALFORMATION [None]
  - BALANCE DISORDER [None]
  - BLOOD PRESSURE DECREASED [None]
  - CARDIAC FAILURE CONGESTIVE [None]
  - CEREBRAL HAEMORRHAGE [None]
  - CEREBROVASCULAR ACCIDENT [None]
  - CONVULSION [None]
  - COUGH [None]
  - DRUG HYPERSENSITIVITY [None]
  - EYE SWELLING [None]
  - FACE OEDEMA [None]
  - INFLAMMATION [None]
  - LACRIMATION INCREASED [None]
  - OEDEMA PERIPHERAL [None]
  - PANIC REACTION [None]
  - PRURITUS [None]
  - RENAL CYST [None]
  - RENAL INJURY [None]
  - RENAL PAIN [None]
  - SNEEZING [None]
  - VERTIGO [None]
  - VITREOUS FLOATERS [None]
  - WEIGHT INCREASED [None]
